FAERS Safety Report 4745443-1 (Version None)
Quarter: 2005Q3

REPORT INFORMATION
  Report Type: 
  Country: None (occurrence: None)
  Receive Date: 20050812
  Receipt Date: 20041223
  Transmission Date: 20060218
  Serious: Yes (Other)
  Sender: FDA-Public Use
  Company Number: PHEH2004US12714

PATIENT
  Age: 83 Year
  Sex: Female
  Weight: 58.9676 kg

DRUGS (8)
  1. VISUDYNE [Suspect]
     Indication: MACULAR DEGENERATION
     Dosage: 10.44 MG DAILY IV
     Route: 042
     Dates: start: 20041122, end: 20041122
  2. FOSAMAX [Concomitant]
  3. DYAZIDE [Concomitant]
  4. NEXIUM [Concomitant]
  5. AMARYL [Concomitant]
  6. CENTRUM [Concomitant]
  7. MAGNESIUM CHLORIDE [Concomitant]
  8. FLUORESCEIN [Concomitant]

REACTIONS (5)
  - BACK PAIN [None]
  - BLOOD PRESSURE INCREASED [None]
  - CHEST PAIN [None]
  - HEADACHE [None]
  - NECK PAIN [None]
